FAERS Safety Report 7216065-8 (Version None)
Quarter: 2011Q1

REPORT INFORMATION
  Report Type: 
  Country: None (occurrence: None)
  Receive Date: 20110107
  Receipt Date: 20110103
  Transmission Date: 20110831
  Serious: Yes (Other)
  Sender: FDA-Public Use
  Company Number: US-PFIZER INC-2008022040

PATIENT
  Sex: Female
  Weight: 54.4 kg

DRUGS (11)
  1. IBUPROFEN [Concomitant]
     Indication: PAIN
  2. SPIRIVA [Concomitant]
  3. OXYBUTYNIN [Concomitant]
     Indication: BLADDER DISORDER
     Dosage: UNK
  4. ADVAIR [Concomitant]
  5. CHANTIX [Suspect]
     Dosage: UNK
     Dates: start: 20070501, end: 20070801
  6. CHANTIX [Suspect]
     Dosage: UNK
     Dates: start: 20071101
  7. CHANTIX [Suspect]
     Dosage: 1 MG, 1X/DAY
  8. CHANTIX [Suspect]
     Indication: SMOKING CESSATION THERAPY
     Dosage: 0.5 MG, 1X/DAY
     Dates: start: 20061001, end: 20070101
  9. CHANTIX [Suspect]
     Dosage: 1 MG, 2X/DAY
     Route: 048
  10. SYNTHROID [Concomitant]
     Indication: HYPOTHYROIDISM
  11. MULTIVITAMIN [Concomitant]

REACTIONS (3)
  - DRUG DOSE OMISSION [None]
  - DRUG DEPENDENCE [None]
  - NIGHTMARE [None]
